FAERS Safety Report 13229651 (Version 1)
Quarter: 2017Q1

REPORT INFORMATION
  Report Type: Spontaneous
  Country: ES (occurrence: ES)
  Receive Date: 20170214
  Receipt Date: 20170214
  Transmission Date: 20170428
  Serious: Yes (Hospitalization, Other)
  Sender: FDA-Public Use
  Company Number: ES-APOTEX-2017AP006554

PATIENT
  Age: 47 Year
  Sex: Male
  Weight: 87 kg

DRUGS (11)
  1. CLOBAZAM [Suspect]
     Active Substance: CLOBAZAM
     Indication: GENERALISED TONIC-CLONIC SEIZURE
     Dosage: 10 MG, Q.12H
     Route: 065
  2. CLOBAZAM [Suspect]
     Active Substance: CLOBAZAM
     Indication: COMPLEX PARTIAL SEIZURES
  3. PROPOFOL. [Concomitant]
     Active Substance: PROPOFOL
     Indication: MAINTENANCE OF ANAESTHESIA
     Dosage: 1 MG/KG/H
     Route: 042
  4. BUPIVACAINE. [Concomitant]
     Active Substance: BUPIVACAINE
     Indication: PRODUCT USED FOR UNKNOWN INDICATION
     Dosage: 40 ML, UNK
     Route: 042
  5. VALPROIC ACID. [Suspect]
     Active Substance: VALPROIC ACID
     Indication: COMPLEX PARTIAL SEIZURES
  6. REMIFENTANIL [Concomitant]
     Active Substance: REMIFENTANIL
     Indication: MAINTENANCE OF ANAESTHESIA
     Dosage: 0.025 G/KG/MIN
     Route: 042
  7. CISATRACURIUM. [Concomitant]
     Active Substance: CISATRACURIUM
     Indication: PRODUCT USED FOR UNKNOWN INDICATION
     Dosage: 10 MG, UNK
     Route: 065
  8. VALPROIC ACID. [Suspect]
     Active Substance: VALPROIC ACID
     Indication: GENERALISED TONIC-CLONIC SEIZURE
     Dosage: 1000MG-500MG-500MG,
     Route: 065
  9. PROPOFOL. [Concomitant]
     Active Substance: PROPOFOL
     Dosage: 60 MG, UNK
     Route: 065
  10. LEVETIRACETAM APOTEX COMPRIMIDOS RECUBIERTOS CON PELICULA [Suspect]
     Active Substance: LEVETIRACETAM
     Indication: GENERALISED TONIC-CLONIC SEIZURE
     Dosage: 1500 MG, Q.12H
     Route: 065
  11. LEVETIRACETAM APOTEX COMPRIMIDOS RECUBIERTOS CON PELICULA [Suspect]
     Active Substance: LEVETIRACETAM
     Indication: COMPLEX PARTIAL SEIZURES

REACTIONS (3)
  - Respiratory depression [Recovered/Resolved]
  - Hyperammonaemic encephalopathy [Recovered/Resolved]
  - Drug interaction [Recovered/Resolved]
